FAERS Safety Report 13603343 (Version 3)
Quarter: 2017Q4

REPORT INFORMATION
  Report Type: Spontaneous
  Country: AT (occurrence: AT)
  Receive Date: 20170601
  Receipt Date: 20171205
  Transmission Date: 20180320
  Serious: No
  Sender: FDA-Public Use
  Company Number: AT-PROMETHEUS LABORATORIES-2016PL000039

PATIENT
  Sex: Female

DRUGS (3)
  1. PROLEUKIN [Suspect]
     Active Substance: ALDESLEUKIN
     Indication: CLEAR CELL RENAL CELL CARCINOMA
     Dosage: UNK UNKNOWN, UNK
     Route: 065
     Dates: start: 200311, end: 200406
  2. IFN ALPHA [Suspect]
     Active Substance: INTERFERON ALFA-2A OR INTERFERON ALFA-2B
     Dosage: UNK UNKNOWN, UNK
     Route: 065
     Dates: start: 200504
  3. IFN ALPHA [Suspect]
     Active Substance: INTERFERON ALFA-2A OR INTERFERON ALFA-2B
     Indication: CLEAR CELL RENAL CELL CARCINOMA
     Dosage: UNK UNKNOWN, UNK
     Route: 065
     Dates: start: 200311

REACTIONS (1)
  - Disease progression [Unknown]

NARRATIVE: CASE EVENT DATE: 200504
